FAERS Safety Report 11846346 (Version 1)
Quarter: 2015Q4

REPORT INFORMATION
  Report Type: Spontaneous
  Country: US (occurrence: US)
  Receive Date: 20151217
  Receipt Date: 20151217
  Transmission Date: 20160305
  Serious: No
  Sender: FDA-Public Use
  Company Number: US-MEDA-2015030087

PATIENT
  Age: 33 Year
  Sex: Female
  Weight: 68 kg

DRUGS (3)
  1. IBUPROFEN. [Concomitant]
     Active Substance: IBUPROFEN
  2. AZELASTINE HYDROCHLORIDE. [Suspect]
     Active Substance: AZELASTINE HYDROCHLORIDE
     Indication: RHINITIS ALLERGIC
     Dosage: 2 SPRAYS IN EACH NOSTRIL ONCE A DAY WHILE HAVING SYMPTOMS AND 1 SPRAY IN EACH NOSTRIL DURING SEASON
     Dates: start: 20150312, end: 20150325
  3. ASTEPRO [Concomitant]
     Active Substance: AZELASTINE HYDROCHLORIDE
     Indication: RHINITIS ALLERGIC

REACTIONS (4)
  - Drug dispensing error [Not Recovered/Not Resolved]
  - Drug ineffective [Unknown]
  - Flushing [Recovered/Resolved]
  - Dyspnoea exertional [Recovered/Resolved]

NARRATIVE: CASE EVENT DATE: 201503
